FAERS Safety Report 10641447 (Version 1)
Quarter: 2014Q4

REPORT INFORMATION
  Report Type: Spontaneous
  Country: IN (occurrence: None)
  Receive Date: 20141208
  Receipt Date: 20141208
  Transmission Date: 20150529
  Serious: Yes (Hospitalization, Other)
  Sender: FDA-Public Use
  Company Number: FK201405803

PATIENT
  Age: 51 Year
  Sex: Female

DRUGS (12)
  1. FLUCONAZOLE (FLUCONAZOLE) [Concomitant]
     Active Substance: FLUCONAZOLE
  2. EMTRICITABINE (EMTRICITABINE) [Concomitant]
  3. GANCICLOVIR FOR INJECTION (MANUFACTURER UNKNOWN) (GANCICLOVIR FOR INJECTION) GANCICLOVIR FOR INJECTION [Suspect]
     Active Substance: GANCICLOVIR
     Indication: DECREASED APPETITE
     Route: 048
  4. TENOFOVIR [Suspect]
     Active Substance: TENOFOVIR
     Indication: PRODUCT USED FOR UNKNOWN INDICATION
  5. 25% DEXTROSE (GLUCOSE) [Concomitant]
  6. GANCICLOVIR FOR INJECTION (MANUFACTURER UNKNOWN) (GANCICLOVIR FOR INJECTION) GANCICLOVIR FOR INJECTION [Suspect]
     Active Substance: GANCICLOVIR
     Indication: DYSPHAGIA
     Route: 048
  7. COTRIMOXAZOLE (BACTRIM) [Concomitant]
  8. EFAVIRENZ (EFAVIRENZ) [Concomitant]
     Active Substance: EFAVIRENZ
  9. OXYGEN (OXYGEN) [Concomitant]
     Active Substance: OXYGEN
  10. SODIUM BICARBONATE (SODIUM BICARBONATE) [Concomitant]
  11. RYLE^S TUBE FEEDING (NIFUROXAZIDE) [Concomitant]
  12. POTASSIUM CHLORIDE (POTASSIUM CHLORIDE) [Concomitant]
     Active Substance: POTASSIUM CHLORIDE

REACTIONS (9)
  - Vomiting [None]
  - Cerebral atrophy [None]
  - Hypophagia [None]
  - Drug interaction [None]
  - Acute kidney injury [None]
  - Heart rate increased [None]
  - Pallor [None]
  - Blood glucose decreased [None]
  - Metabolic acidosis [None]
